FAERS Safety Report 7870246-9 (Version None)
Quarter: 2011Q4

REPORT INFORMATION
  Report Type: 
  Country: None (occurrence: None)
  Receive Date: 20111028
  Receipt Date: 20110117
  Transmission Date: 20120403
  Serious: No
  Sender: FDA-Public Use
  Company Number: US-AMGEN-USASP2011000571

PATIENT
  Age: 62 Year
  Sex: Male

DRUGS (1)
  1. ENBREL [Suspect]
     Indication: ANKYLOSING SPONDYLITIS
     Dosage: 50 MG, QWK
     Dates: start: 20101207

REACTIONS (5)
  - SNEEZING [None]
  - PARANASAL SINUS HYPERSECRETION [None]
  - EYE PRURITUS [None]
  - THROAT IRRITATION [None]
  - PRURITUS [None]
